FAERS Safety Report 10376281 (Version 3)
Quarter: 2014Q3

REPORT INFORMATION
  Report Type: Spontaneous
  Country: HU (occurrence: HU)
  Receive Date: 20140811
  Receipt Date: 20140814
  Transmission Date: 20150326
  Serious: Yes (Hospitalization, Other)
  Sender: FDA-Public Use
  Company Number: HU-PFIZER INC-2014219734

PATIENT
  Age: 66 Year
  Sex: Male

DRUGS (9)
  1. BISOBLOC [Concomitant]
     Dosage: 5 MG, 1X/DAY
     Route: 048
     Dates: start: 201209
  2. FUROSEMIDE. [Concomitant]
     Active Substance: FUROSEMIDE
     Dosage: 1 DF, 1X/DAY
     Route: 048
     Dates: start: 201209
  3. DETRALEX [Concomitant]
     Active Substance: DIOSMIN\HESPERIDIN
     Dosage: 500 MG, 2X/DAY
     Route: 048
     Dates: start: 201209
  4. HYZAAR FORTE [Concomitant]
     Dosage: 1 DF, 1X/DAY 100/25 MG
     Route: 048
     Dates: start: 20130829
  5. MARFARIN [Concomitant]
     Active Substance: WARFARIN
     Indication: THROMBOSIS
     Dosage: WEEKLY: 3 MG FOR 6 DAYS, 5 MG FOR 1 DAY
     Route: 048
     Dates: start: 20120913
  6. SUTENT [Suspect]
     Active Substance: SUNITINIB MALATE
     Indication: RENAL CELL CARCINOMA STAGE IV
     Dosage: 50 MG, 1X/DAY 50 MG DAILY FOR 28 DAYS THEN 14 DAYS BREAK
     Route: 048
     Dates: start: 20120410, end: 20130121
  7. PORTIRON HCT [Concomitant]
     Dosage: 1 DF, 1X/DAY
     Route: 048
     Dates: start: 201209, end: 20130828
  8. KALDYUM [Concomitant]
     Active Substance: POTASSIUM CHLORIDE
     Dosage: 600 MG, 1X/DAY
     Route: 048
     Dates: start: 201209
  9. MILURIT [Concomitant]
     Active Substance: ALLOPURINOL
     Dosage: 300 MG, 1X/DAY
     Route: 048

REACTIONS (7)
  - Arthralgia [Unknown]
  - Dysgeusia [Unknown]
  - Palmar-plantar erythrodysaesthesia syndrome [Unknown]
  - Swelling face [Unknown]
  - Skin ulcer [Recovered/Resolved]
  - Deep vein thrombosis [Unknown]
  - Local swelling [Unknown]

NARRATIVE: CASE EVENT DATE: 201205
